FAERS Safety Report 10037123 (Version 1)
Quarter: 2014Q1

REPORT INFORMATION
  Report Type: Spontaneous
  Country: US (occurrence: None)
  Receive Date: 20140325
  Receipt Date: 20140325
  Transmission Date: 20141002
  Serious: Yes (Hospitalization)
  Sender: FDA-Public Use
  Company Number: None

PATIENT
  Age: 65 Year
  Sex: Male
  Weight: 112.49 kg

DRUGS (6)
  1. CIALIS (TADALAFIL) [Suspect]
     Indication: ERECTILE DYSFUNCTION
     Dosage: 20 MG ONE-HALF OF A 20 MG TABLET
     Route: 048
     Dates: end: 20140304
  2. ATORVASTATIN [Concomitant]
  3. LISINOPRIL [Concomitant]
  4. ASPIRIN [Concomitant]
  5. ADVIL [Concomitant]
  6. PRILOSEC [Concomitant]

REACTIONS (1)
  - Convulsion [None]
